FAERS Safety Report 4353195-2 (Version None)
Quarter: 2004Q2

REPORT INFORMATION
  Report Type: 
  Country: None (occurrence: None)
  Receive Date: 20040503
  Receipt Date: 20040503
  Transmission Date: 20050107
  Serious: Yes (Hospitalization, Other)
  Sender: FDA-Public Use
  Company Number: None

PATIENT
  Sex: Female
  Weight: 55 kg

DRUGS (2)
  1. LAMICTAL [Suspect]
     Indication: CONVULSION
     Dosage: 175 MG PO DAILY
     Route: 048
     Dates: start: 20040201, end: 20040316
  2. ATOMOXETINE [Concomitant]

REACTIONS (6)
  - DESQUAMATION MOUTH [None]
  - EYE PAIN [None]
  - SKIN DESQUAMATION [None]
  - STEVENS-JOHNSON SYNDROME [None]
  - VAGINAL EROSION [None]
  - VARICELLA [None]
